FAERS Safety Report 4496568-X (Version None)
Quarter: 2004Q3

REPORT INFORMATION
  Report Type: 
  Country: None (occurrence: None)
  Receive Date: 20040923
  Receipt Date: 20040317
  Transmission Date: 20050211
  Serious: Yes (Other)
  Sender: FDA-Public Use
  Company Number: 2004019313

PATIENT
  Age: 6 Year
  Sex: Female
  Weight: 16.3295 kg

DRUGS (3)
  1. ZYRTEC [Suspect]
     Indication: HYPERSENSITIVITY
     Dosage: 5 MG (DAILY), ORAL
     Route: 048
     Dates: start: 20040206, end: 20040315
  2. FLUTICASONE PROPIONATE [Concomitant]
  3. MOMETASONE FUROATE [Concomitant]

REACTIONS (2)
  - COUGH [None]
  - DYSPNOEA [None]
